FAERS Safety Report 7009312-9 (Version None)
Quarter: 2010Q3

REPORT INFORMATION
  Report Type: 
  Country: None (occurrence: None)
  Receive Date: 20100923
  Receipt Date: 20100910
  Transmission Date: 20110219
  Serious: Yes (Disabling, Other)
  Sender: FDA-Public Use
  Company Number: NO-ELI_LILLY_AND_COMPANY-NO201009003642

PATIENT
  Sex: Female

DRUGS (6)
  1. ZYPREXA [Suspect]
     Dosage: UNK, UNKNOWN
     Route: 065
     Dates: start: 20070514, end: 20070527
  2. SOBRIL [Concomitant]
     Dosage: UNK, UNKNOWN
     Route: 065
     Dates: start: 20070514, end: 20070527
  3. HEPATODORON [Concomitant]
     Indication: DYSPEPSIA
     Dosage: UNK, UNKNOWN
     Route: 065
  4. CARDIODORON B [Concomitant]
     Indication: HEART RATE
     Dosage: UNK, UNKNOWN
     Route: 065
  5. VITAMINS WITH MINERALS [Concomitant]
     Dosage: UNK, UNKNOWN
     Route: 065
  6. NEO-MERCAZOLE TAB [Concomitant]
     Dosage: UNK, UNKNOWN
     Route: 065
     Dates: start: 20070514, end: 20091216

REACTIONS (34)
  - ADVERSE EVENT [None]
  - ALOPECIA [None]
  - ANXIETY [None]
  - BACK PAIN [None]
  - CARPAL TUNNEL SYNDROME [None]
  - CONVULSION [None]
  - DEPRESSION [None]
  - DISABILITY [None]
  - DYSGEUSIA [None]
  - FATIGUE [None]
  - GLOSSODYNIA [None]
  - HEADACHE [None]
  - HOT FLUSH [None]
  - HYPOAESTHESIA [None]
  - HYPOAESTHESIA FACIAL [None]
  - IMMUNE SYSTEM DISORDER [None]
  - INJURY [None]
  - IRRITABILITY [None]
  - MEMORY IMPAIRMENT [None]
  - MUSCLE SPASMS [None]
  - MUSCLE TWITCHING [None]
  - MUSCULOSKELETAL STIFFNESS [None]
  - NAUSEA [None]
  - NEGATIVE THOUGHTS [None]
  - PAIN [None]
  - PERIPHERAL COLDNESS [None]
  - RESTLESS LEGS SYNDROME [None]
  - SOMNOLENCE [None]
  - SPEECH DISORDER [None]
  - TONGUE DISORDER [None]
  - TOOTH LOSS [None]
  - TREMOR [None]
  - VOMITING [None]
  - WEIGHT INCREASED [None]
